FAERS Safety Report 12479742 (Version 1)
Quarter: 2016Q2

REPORT INFORMATION
  Report Type: Spontaneous
  Country: US (occurrence: US)
  Receive Date: 20160620
  Receipt Date: 20160620
  Transmission Date: 20160815
  Serious: No
  Sender: FDA-Public Use
  Company Number: US-PFIZER INC-2016296022

PATIENT
  Sex: Female

DRUGS (1)
  1. ATIVAN [Suspect]
     Active Substance: LORAZEPAM
     Dosage: UNK

REACTIONS (2)
  - Palpitations [Unknown]
  - Drug hypersensitivity [Unknown]
